FAERS Safety Report 7461954 (Version 5)
Quarter: 2014Q2

REPORT INFORMATION
  Report Type: Spontaneous
  Country: US (occurrence: None)
  Receive Date: 20100630
  Receipt Date: 20140401
  Transmission Date: 20141212
  Serious: Yes (Other)
  Sender: FDA-Public Use
  Company Number: JPI-P-011086

PATIENT
  Age: 58 Year
  Sex: Female

DRUGS (10)
  1. XYREM [Suspect]
     Indication: NARCOLEPSY
     Route: 048
     Dates: start: 20100413, end: 2010
  2. XYREM [Suspect]
     Indication: SLEEP APNOEA SYNDROME
     Route: 048
     Dates: start: 20100413, end: 2010
  3. MODAFINIL [Suspect]
  4. ARMODAFINIL [Concomitant]
  5. ACYCLOVIR [Concomitant]
  6. CALCIUM [Concomitant]
  7. MAGNESIUM [Concomitant]
  8. OMEGA 3 [Concomitant]
  9. FLAXSEED OIL [Concomitant]
  10. ESOMEPRAZOLE [Concomitant]

REACTIONS (24)
  - Dizziness [None]
  - Tooth disorder [None]
  - Moaning [None]
  - Facial pain [None]
  - Nausea [None]
  - Hyperhidrosis [None]
  - Hepatomegaly [None]
  - Chest pain [None]
  - Abdominal pain upper [None]
  - Weight decreased [None]
  - Swelling face [None]
  - Bladder pain [None]
  - Pharyngeal oedema [None]
  - Oesophageal disorder [None]
  - Hiatus hernia [None]
  - Gastrointestinal inflammation [None]
  - Non-Hodgkin^s lymphoma recurrent [None]
  - Gastrooesophageal reflux disease [None]
  - Stem cell transplant [None]
  - Condition aggravated [None]
  - Expired product administered [None]
  - Inappropriate schedule of drug administration [None]
  - Periorbital oedema [None]
  - Blood pressure increased [None]
